FAERS Safety Report 7518291-7 (Version None)
Quarter: 2011Q2

REPORT INFORMATION
  Report Type: 
  Country: None (occurrence: None)
  Receive Date: 20110601
  Receipt Date: 20110601
  Transmission Date: 20111010
  Serious: No
  Sender: FDA-Public Use
  Company Number: None

PATIENT
  Age: 46 Year
  Sex: Female
  Weight: 82.5547 kg

DRUGS (2)
  1. AGRYLIN [Suspect]
     Indication: ESSENTIAL THROMBOCYTHAEMIA
     Dosage: AGRYLIN 0.5MG QD PO
     Route: 048
  2. ANAGRILIDE [Concomitant]

REACTIONS (4)
  - DRUG INTOLERANCE [None]
  - PRODUCT SUBSTITUTION ISSUE [None]
  - THROMBOCYTOSIS [None]
  - CONDITION AGGRAVATED [None]
